FAERS Safety Report 26104408 (Version 1)
Quarter: 2025Q4

REPORT INFORMATION
  Report Type: Report from Study
  Country: US (occurrence: US)
  Receive Date: 20251130
  Receipt Date: 20251130
  Transmission Date: 20260118
  Serious: No
  Sender: TRAVERE THERAPEUTICS
  Company Number: US-TRAVERE-2025TVT02253

PATIENT
  Age: 38 Year
  Sex: Male
  Weight: 91.6 kg

DRUGS (5)
  1. FILSPARI [Suspect]
     Active Substance: SPARSENTAN
     Indication: IgA nephropathy
     Route: 048
     Dates: start: 202509, end: 202509
  2. FILSPARI [Suspect]
     Active Substance: SPARSENTAN
     Route: 048
     Dates: start: 202509
  3. ZONISAMIDE [Concomitant]
     Active Substance: ZONISAMIDE
  4. JARDIANCE [Concomitant]
     Active Substance: EMPAGLIFLOZIN
  5. PHENYTOIN SODIUM [Concomitant]
     Active Substance: PHENYTOIN SODIUM

REACTIONS (2)
  - Protein urine present [Unknown]
  - Heart rate decreased [Unknown]

NARRATIVE: CASE EVENT DATE: 20250923
